FAERS Safety Report 6237189-8 (Version None)
Quarter: 2009Q2

REPORT INFORMATION
  Report Type: 
  Country: None (occurrence: None)
  Receive Date: 20090619
  Receipt Date: 20090612
  Transmission Date: 20091009
  Serious: Yes (Other)
  Sender: FDA-Public Use
  Company Number: IE-ABBOTT-09P-229-0579457-00

PATIENT
  Age: 27 Year
  Sex: Female

DRUGS (3)
  1. EPILIM [Suspect]
     Indication: EPILEPSY
  2. OLANZAPINE [Concomitant]
     Indication: DRUG USE FOR UNKNOWN INDICATION
     Route: 065
  3. TRAVATAN [Concomitant]
     Indication: DRUG USE FOR UNKNOWN INDICATION

REACTIONS (3)
  - AGGRESSION [None]
  - BLOOD PROLACTIN INCREASED [None]
  - TERATOMA [None]
